FAERS Safety Report 8586206-9 (Version None)
Quarter: 2012Q3

REPORT INFORMATION
  Report Type: 
  Country: None (occurrence: None)
  Receive Date: 20120810
  Receipt Date: 20120806
  Transmission Date: 20120928
  Serious: Yes (Hospitalization)
  Sender: FDA-Public Use
  Company Number: JP-GLAXOSMITHKLINE-B0821859A

PATIENT
  Sex: Female

DRUGS (6)
  1. LAMICTAL [Suspect]
     Indication: DEPRESSION
     Dosage: 25MG PER DAY
     Route: 048
     Dates: start: 20120720, end: 20120726
  2. LAMICTAL [Suspect]
     Dosage: 50MG PER DAY
     Route: 048
     Dates: start: 20120727, end: 20120731
  3. SULPIRIDE [Concomitant]
     Dosage: 100MG PER DAY
     Route: 065
  4. PROTHIADEN [Concomitant]
     Dosage: 75MG PER DAY
     Route: 048
  5. REFLEX (JAPAN) [Concomitant]
     Dosage: 15MG PER DAY
     Route: 048
  6. MEILAX [Concomitant]
     Route: 048

REACTIONS (1)
  - DRUG ERUPTION [None]
